FAERS Safety Report 18205208 (Version 2)
Quarter: 2020Q4

REPORT INFORMATION
  Report Type: Spontaneous
  Country: FR (occurrence: FR)
  Receive Date: 20200828
  Receipt Date: 20201013
  Transmission Date: 20210113
  Serious: No
  Sender: FDA-Public Use
  Company Number: FR-BEH-2020121648

PATIENT

DRUGS (2)
  1. RHOPHYLAC [Suspect]
     Active Substance: HUMAN RHO(D) IMMUNE GLOBULIN
     Dosage: UNK
     Route: 042
  2. RHOPHYLAC [Suspect]
     Active Substance: HUMAN RHO(D) IMMUNE GLOBULIN
     Dosage: UNK
     Route: 042

REACTIONS (3)
  - Syringe issue [Unknown]
  - Device issue [Unknown]
  - No adverse event [Unknown]
